FAERS Safety Report 8325373-9 (Version None)
Quarter: 2012Q2

REPORT INFORMATION
  Report Type: 
  Country: None (occurrence: None)
  Receive Date: 20120501
  Receipt Date: 20100414
  Transmission Date: 20120825
  Serious: No
  Sender: FDA-Public Use
  Company Number: US-TEVA-2010002198

PATIENT
  Age: 60 Year
  Sex: Male

DRUGS (15)
  1. SPIRIVA [Concomitant]
  2. CLONIDINE [Concomitant]
  3. PRILOSEC [Concomitant]
  4. ALBUTEROL [Concomitant]
  5. ADVAIR DISKUS 100/50 [Concomitant]
  6. NUVIGIL [Suspect]
     Indication: NARCOLEPSY
     Dosage: 150 MILLIGRAM;
     Route: 048
     Dates: start: 20090101, end: 20090101
  7. LEXAPRO [Concomitant]
  8. REGLAN [Concomitant]
  9. METFORMIN HCL [Concomitant]
  10. RANITIDINE [Concomitant]
  11. NUVIGIL [Suspect]
     Dosage: 250 MILLIGRAM;
     Route: 048
     Dates: start: 20090101, end: 20091101
  12. MERIDIA [Concomitant]
     Dates: start: 20090701
  13. NEURONTIN [Concomitant]
  14. LIPITOR [Concomitant]
  15. ASPIRIN [Concomitant]

REACTIONS (4)
  - TONGUE DISORDER [None]
  - CANDIDIASIS [None]
  - SPEECH DISORDER [None]
  - DYSPHAGIA [None]
